FAERS Safety Report 4403490-3 (Version None)
Quarter: 2004Q3

REPORT INFORMATION
  Report Type: 
  Country: None (occurrence: None)
  Receive Date: 20040721
  Receipt Date: 20040715
  Transmission Date: 20050211
  Serious: Yes (Other)
  Sender: FDA-Public Use
  Company Number: JP-BRISTOL-MYERS SQUIBB COMPANY-12645453

PATIENT
  Age: 61 Year
  Sex: Female

DRUGS (1)
  1. PRAVASTATIN SODIUM [Suspect]
     Route: 048
     Dates: start: 20010201, end: 20010301

REACTIONS (2)
  - DIABETES MELLITUS [None]
  - LIVER DISORDER [None]
